FAERS Safety Report 5225475-X (Version None)
Quarter: 2007Q1

REPORT INFORMATION
  Report Type: 
  Country: None (occurrence: None)
  Receive Date: 20070131
  Receipt Date: 20070124
  Transmission Date: 20070707
  Serious: Yes (Hospitalization, Other)
  Sender: FDA-Public Use
  Company Number: IE-PFIZER INC-2006142274

PATIENT
  Age: 49 Year
  Sex: Female
  Weight: 64 kg

DRUGS (2)
  1. LYRICA [Suspect]
     Indication: NEUROPATHY
     Route: 048
  2. LYRICA [Suspect]
     Indication: MYOFASCIAL PAIN SYNDROME

REACTIONS (3)
  - ENDOMETRIAL HYPERPLASIA [None]
  - MENSTRUATION IRREGULAR [None]
  - POLYMENORRHAGIA [None]
